FAERS Safety Report 9702838 (Version 1)
Quarter: 2013Q4

REPORT INFORMATION
  Report Type: Spontaneous
  Country: US (occurrence: None)
  Receive Date: 20131120
  Receipt Date: 20131120
  Transmission Date: 20140711
  Serious: Yes (Other)
  Sender: FDA-Public Use
  Company Number: ONY-2013-009

PATIENT
  Sex: 0
  Weight: .8 kg

DRUGS (1)
  1. INFASURF [Suspect]
     Dosage: INTRATRACHEAL

REACTIONS (1)
  - Endotracheal intubation complication [None]
